FAERS Safety Report 8275342-2 (Version None)
Quarter: 2012Q2

REPORT INFORMATION
  Report Type: 
  Country: None (occurrence: None)
  Receive Date: 20120411
  Receipt Date: 20120329
  Transmission Date: 20120825
  Serious: Yes (Hospitalization, Other)
  Sender: FDA-Public Use
  Company Number: FR-ROCHE-772531

PATIENT
  Sex: Male
  Weight: 80 kg

DRUGS (28)
  1. PREDNISOLONE [Suspect]
     Route: 048
  2. ARANESP [Concomitant]
     Route: 058
  3. PHOSPHONEUROS [Concomitant]
     Dosage: TOTAL DAILY DOSE:150 DROPS/DAY
     Route: 048
  4. PROPRANOLOL [Concomitant]
     Route: 048
  5. LOVENOX [Concomitant]
     Dates: start: 20110104, end: 20110205
  6. EVEROLIMUS [Suspect]
     Indication: RENAL TRANSPLANT
     Dosage: LAST DOSE PRIOR TO SAE:20 FEBRUARY 2011
     Route: 048
  7. VENOFER [Concomitant]
     Dosage: DOSE: 100 MG/MOS.
     Route: 042
  8. LASIX [Concomitant]
     Route: 048
  9. PENTACARINAT [Concomitant]
     Route: 055
  10. PANTOPRAZOLE [Concomitant]
     Route: 048
  11. POTASSIUM CHLORIDE [Concomitant]
     Dosage: FREQUENCY: 6G/D
  12. MYCOPHENOLATE MOFETIL (CELLCEPT) [Suspect]
     Route: 048
  13. ACETAMINOPHEN [Concomitant]
     Route: 048
  14. LASIX [Concomitant]
     Route: 048
     Dates: start: 20110124, end: 20110214
  15. VALGANCICLOVIR [Concomitant]
     Dosage: FREQUENCY:EVERY SECOND DAY
     Route: 048
  16. MYCOPHENOLATE MOFETIL (CELLCEPT) [Suspect]
     Indication: RENAL TRANSPLANT
     Dosage: LAST DOSE PRIOR TO SAE:24 FEBRUARY 2011
     Route: 048
  17. PENTACARINAT [Concomitant]
     Dosage: DOSE: 01 AER
     Route: 055
  18. EVEROLIMUS [Suspect]
     Route: 048
  19. PREDNISOLONE [Suspect]
     Indication: RENAL TRANSPLANT
     Dosage: LAST DOSE PRIOR TO SAE:13 FEBRUARY 2011
     Route: 048
  20. WARFARIN SODIUM [Concomitant]
     Dosage: DRUG TRADE NAME:WARFARINE
  21. OFLOXACIN [Concomitant]
     Dates: start: 20110111, end: 20110204
  22. LEVOTHYROXINE SODIUM [Concomitant]
     Route: 048
  23. POTASSIUM CHLORIDE [Concomitant]
     Dates: start: 20110128, end: 20110204
  24. PHOSPHONEUROS [Concomitant]
     Dosage: 75 DROPS
     Route: 048
  25. CINACALCET HYDROCHLORIDE [Concomitant]
  26. MYCOPHENOLATE MOFETIL (CELLCEPT) [Suspect]
  27. VALGANCICLOVIR [Concomitant]
     Route: 048
  28. SODIUM BICARBONATE [Concomitant]

REACTIONS (7)
  - RENAL IMPAIRMENT [None]
  - IMPAIRED HEALING [None]
  - INFLAMMATION [None]
  - TRANSPLANT REJECTION [None]
  - HYPERTHERMIA [None]
  - LYMPHOCELE [None]
  - RENAL LYMPHOCELE [None]
